FAERS Safety Report 10708755 (Version 2)
Quarter: 2015Q2

REPORT INFORMATION
  Report Type: Spontaneous
  Country: US (occurrence: US)
  Receive Date: 20150113
  Receipt Date: 20150429
  Transmission Date: 20150821
  Serious: No
  Sender: FDA-Public Use
  Company Number: US-PFIZER INC-2015013002

PATIENT
  Age: 77 Year
  Sex: Male
  Weight: 70 kg

DRUGS (3)
  1. GABAPENTIN. [Suspect]
     Active Substance: GABAPENTIN
     Indication: HYPOAESTHESIA
  2. GABAPENTIN. [Suspect]
     Active Substance: GABAPENTIN
     Indication: PAIN
  3. GABAPENTIN. [Suspect]
     Active Substance: GABAPENTIN
     Indication: NEUROPATHY PERIPHERAL
     Dosage: 150 MG, 2X/DAY
     Route: 048

REACTIONS (5)
  - Dizziness [Unknown]
  - Drug ineffective [Unknown]
  - Abnormal dreams [Unknown]
  - Feeling abnormal [Unknown]
  - Hangover [Unknown]
